FAERS Safety Report 16990614 (Version 1)
Quarter: 2019Q4

REPORT INFORMATION
  Report Type: Spontaneous
  Country: BR (occurrence: BR)
  Receive Date: 20191104
  Receipt Date: 20191104
  Transmission Date: 20200122
  Serious: Yes (Other)
  Sender: FDA-Public Use
  Company Number: BR-GLAXOSMITHKLINE-BR2019AMR195006

PATIENT
  Age: 29 Month
  Sex: Male

DRUGS (2)
  1. ZINNAT [Suspect]
     Active Substance: CEFUROXIME
     Indication: PHARYNGITIS
     Dosage: 4 ML, UNK, EVERY 12 HOURS
  2. AMOXICILLIN. [Suspect]
     Active Substance: AMOXICILLIN
     Indication: PHARYNGITIS
     Dosage: UNK

REACTIONS (5)
  - Drug ineffective [Unknown]
  - Crying [Recovered/Resolved]
  - Abdominal pain [Not Recovered/Not Resolved]
  - Pathogen resistance [Unknown]
  - Vomiting [Recovered/Resolved]
